FAERS Safety Report 19105884 (Version 6)
Quarter: 2021Q2

REPORT INFORMATION
  Report Type: Spontaneous
  Country: GB (occurrence: GB)
  Receive Date: 20210407
  Receipt Date: 20210629
  Transmission Date: 20210717
  Serious: Yes (Disabling, Other)
  Sender: FDA-Public Use
  Company Number: GB-MYLANLABS-2021M1021117

PATIENT
  Age: 24 Year
  Sex: Male

DRUGS (12)
  1. SERTRALINE [Suspect]
     Active Substance: SERTRALINE HYDROCHLORIDE
     Indication: ANTIDEPRESSANT THERAPY
     Dosage: 50 MILLIGRAM
     Route: 048
     Dates: start: 2014
  2. CITALOPRAM [Suspect]
     Active Substance: CITALOPRAM HYDROBROMIDE
     Indication: ILL-DEFINED DISORDER
     Dosage: 10MG INITALLY
     Dates: start: 201507
  3. TEMAZEPAM. [Suspect]
     Active Substance: TEMAZEPAM
     Indication: POOR QUALITY SLEEP
     Dosage: 10MG DAILY
     Route: 048
  4. TRAZODONE [Suspect]
     Active Substance: TRAZODONE HYDROCHLORIDE
     Indication: ANTIDEPRESSANT THERAPY
     Dosage: 50MG INITAILLY INCREASED TO 100MG DAILY THEN REDUCED TO 50MG BEFORE STOPPING
     Route: 048
     Dates: start: 2015, end: 201507
  5. TRAZODONE [Suspect]
     Active Substance: TRAZODONE HYDROCHLORIDE
     Dosage: 50 MG (50MG INITAILLY)
     Route: 048
     Dates: start: 2015, end: 201507
  6. SERTRALINE [Suspect]
     Active Substance: SERTRALINE HYDROCHLORIDE
     Dosage: 50MG INITALLY THEN 100MG
     Route: 048
     Dates: start: 2014
  7. CIPRALEX [Suspect]
     Active Substance: ESCITALOPRAM OXALATE
     Indication: ANTIDEPRESSANT THERAPY
     Dosage: 10MG DAILY
     Route: 048
     Dates: start: 201507, end: 201509
  8. TRAZODONE [Suspect]
     Active Substance: TRAZODONE HYDROCHLORIDE
     Dosage: 100 MILLIGRAM
     Route: 048
  9. TRAZODONE [Suspect]
     Active Substance: TRAZODONE HYDROCHLORIDE
     Dosage: 100 MG, QD (INCREASED TO 100MG DAILY)
     Route: 048
     Dates: start: 2015, end: 201507
  10. MIRTAZAPINE. [Suspect]
     Active Substance: MIRTAZAPINE
     Dosage: 7.5MG ? UP TITRATED TO 45MG DAILY THEN REDUCED DOWN TO STOP
     Route: 048
     Dates: end: 2015
  11. MIRTAZAPINE. [Suspect]
     Active Substance: MIRTAZAPINE
     Indication: ANTIDEPRESSANT THERAPY
     Dosage: 7.5MG ? UP TITRATED TO 45MG DAILY THEN REDUCED DOWN TO STOP
     Route: 048
     Dates: start: 2014, end: 2015
  12. RISPERDAL [Suspect]
     Active Substance: RISPERIDONE
     Indication: ILL-DEFINED DISORDER
     Dosage: UNK
     Route: 048

REACTIONS (18)
  - Suicide attempt [Unknown]
  - Product use in unapproved indication [Unknown]
  - Homicidal ideation [Unknown]
  - Paranoia [Unknown]
  - Hallucination, visual [Unknown]
  - Agitation [Unknown]
  - Irritability [Unknown]
  - Hallucination, auditory [Unknown]
  - Anger [Unknown]
  - Nausea [Unknown]
  - Somnolence [Unknown]
  - Loss of libido [Unknown]
  - Headache [Unknown]
  - Mood swings [Unknown]
  - Intrusive thoughts [Unknown]
  - Suicidal ideation [Unknown]
  - Insomnia [Unknown]
  - Psychotic disorder [Unknown]
